FAERS Safety Report 9197626 (Version 1)
Quarter: 2013Q1

REPORT INFORMATION
  Report Type: Spontaneous
  Country: CH (occurrence: CH)
  Receive Date: 20130328
  Receipt Date: 20130328
  Transmission Date: 20140127
  Serious: Yes (Other)
  Sender: FDA-Public Use
  Company Number: CH-BAYER-2013-037005

PATIENT
  Age: 73 Year
  Sex: Female

DRUGS (1)
  1. ACETYLSALICYLIC ACID({=100 MG) [Suspect]
     Indication: CORONARY ARTERY DISEASE
     Dosage: 100 MG, QD

REACTIONS (2)
  - Pyloric stenosis [Recovering/Resolving]
  - Gastritis [None]
